FAERS Safety Report 22299970 (Version 1)
Quarter: 2023Q2

REPORT INFORMATION
  Report Type: Spontaneous
  Country: US (occurrence: None)
  Receive Date: 20230505
  Receipt Date: 20230505
  Transmission Date: 20230722
  Serious: Yes (Hospitalization)
  Sender: FDA-Public Use
  Company Number: None

PATIENT
  Age: 27 Year
  Sex: Female
  Weight: 58.40 kg

DRUGS (1)
  1. MIRCERA [Suspect]
     Active Substance: METHOXY POLYETHYLENE GLYCOL-EPOETIN BETA
     Dosage: 100 MICROGRAM(S) UGM?
     Route: 042
     Dates: start: 20230414, end: 20230414

REACTIONS (2)
  - Blood pressure decreased [None]
  - Loss of consciousness [None]

NARRATIVE: CASE EVENT DATE: 20230414
